FAERS Safety Report 6766220-6 (Version None)
Quarter: 2010Q2

REPORT INFORMATION
  Report Type: 
  Country: None (occurrence: None)
  Receive Date: 20100611
  Receipt Date: 20100601
  Transmission Date: 20101027
  Serious: Yes (Disabling, Other)
  Sender: FDA-Public Use
  Company Number: PHHY2010US29565

PATIENT
  Sex: Male
  Weight: 90.703 kg

DRUGS (10)
  1. EXELON [Suspect]
     Indication: NERVOUS SYSTEM DISORDER
     Dosage: 4.6 MG
     Route: 062
     Dates: start: 20100426, end: 20100504
  2. EXELON [Suspect]
     Dosage: 9.5 MG
     Route: 062
     Dates: end: 20100504
  3. CARBATROL [Concomitant]
  4. NAMENDA [Concomitant]
  5. ARICEPT [Concomitant]
     Indication: MENTAL STATUS CHANGES
  6. RAZADYNE [Concomitant]
  7. SEROQUEL [Concomitant]
     Dosage: UNK
  8. ATIVAN [Concomitant]
  9. HALDOL [Concomitant]
     Dosage: UNK
  10. RISPERIDONE [Concomitant]

REACTIONS (6)
  - COGNITIVE DISORDER [None]
  - DIARRHOEA [None]
  - DRUG DOSE OMISSION [None]
  - GAIT DISTURBANCE [None]
  - NAUSEA [None]
  - VOMITING [None]
